FAERS Safety Report 14122092 (Version 1)
Quarter: 2017Q4

REPORT INFORMATION
  Report Type: Spontaneous
  Country: JP (occurrence: JP)
  Receive Date: 20171024
  Receipt Date: 20171024
  Transmission Date: 20180321
  Serious: Yes (Other)
  Sender: FDA-Public Use
  Company Number: JP-MYLANLABS-2017M1066972

PATIENT
  Sex: Male

DRUGS (4)
  1. KLARICID TABLETS 200MG [Suspect]
     Active Substance: CLARITHROMYCIN
     Indication: VIRAL UPPER RESPIRATORY TRACT INFECTION
     Route: 048
  2. BIOFERMIN R [Concomitant]
     Active Substance: BACILLUS SUBTILIS\LACTOBACILLUS ACIDOPHILUS\STREPTOCOCCUS FAECAIS
     Indication: PRODUCT USED FOR UNKNOWN INDICATION
     Route: 048
  3. KLARICID TABLETS 200MG [Suspect]
     Active Substance: CLARITHROMYCIN
     Route: 048
  4. KAKKONTO                           /07985901/ [Concomitant]
     Active Substance: HERBALS
     Indication: PRODUCT USED FOR UNKNOWN INDICATION
     Route: 048

REACTIONS (4)
  - Medication error [Unknown]
  - Dysarthria [Unknown]
  - Visual impairment [Unknown]
  - Macular degeneration [Unknown]
